FAERS Safety Report 18936428 (Version 1)
Quarter: 2021Q1

REPORT INFORMATION
  Report Type: Spontaneous
  Country: NL (occurrence: FR)
  Receive Date: 20210224
  Receipt Date: 20210224
  Transmission Date: 20210420
  Serious: Yes (Life-Threatening)
  Sender: FDA-Public Use
  Company Number: FR-FRESENIUS KABI-FK202101766

PATIENT
  Age: 91 Year
  Sex: Female
  Weight: 61 kg

DRUGS (5)
  1. METRONIDAZOLE. [Concomitant]
     Active Substance: METRONIDAZOLE
     Indication: PNEUMONIA ASPIRATION
     Route: 042
     Dates: start: 20201225, end: 20201231
  2. ENOXAPARIN SODIUM. [Concomitant]
     Active Substance: ENOXAPARIN SODIUM
     Indication: THROMBOSIS PROPHYLAXIS
     Route: 058
     Dates: start: 20201219, end: 20201229
  3. PARACETAMOL [Concomitant]
     Active Substance: ACETAMINOPHEN
     Indication: PAIN
     Route: 042
     Dates: start: 20201224, end: 20201228
  4. CEFOTAXIME SODIUM [Concomitant]
     Active Substance: CEFOTAXIME SODIUM
     Indication: PNEUMONIA ASPIRATION
     Route: 042
     Dates: start: 20201225, end: 20201230
  5. MANNITOL (MANUFACTURER UNKNOWN) [Suspect]
     Active Substance: MANNITOL
     Indication: CEREBROVASCULAR ACCIDENT
     Route: 042
     Dates: start: 20201225, end: 20201229

REACTIONS (1)
  - Acute kidney injury [Recovered/Resolved]

NARRATIVE: CASE EVENT DATE: 20201229
